FAERS Safety Report 20311056 (Version 1)
Quarter: 2022Q1

REPORT INFORMATION
  Report Type: Spontaneous
  Country: US (occurrence: US)
  Receive Date: 20220107
  Receipt Date: 20220107
  Transmission Date: 20220423
  Serious: No
  Sender: FDA-Public Use
  Company Number: US-BIOMARINAP-US-2021-140419

PATIENT
  Age: 27 Year
  Sex: Male

DRUGS (5)
  1. KUVAN [Suspect]
     Active Substance: SAPROPTERIN DIHYDROCHLORIDE
     Indication: Psychotic disorder
     Dosage: 2500 MILLIGRAM, QD
     Route: 065
     Dates: start: 201908
  2. HALOPERIDOL [Concomitant]
     Active Substance: HALOPERIDOL
     Indication: Psychotic disorder
  3. CLOZAPINE [Concomitant]
     Active Substance: CLOZAPINE
     Indication: Psychotic disorder
  4. CARBIDOPA [Concomitant]
     Active Substance: CARBIDOPA
     Indication: Psychotic disorder
  5. MIDAZOLAM [Concomitant]
     Active Substance: MIDAZOLAM
     Indication: Psychotic disorder

REACTIONS (2)
  - Catatonia [Unknown]
  - Off label use [Unknown]

NARRATIVE: CASE EVENT DATE: 20190801
